FAERS Safety Report 8032430-3 (Version None)
Quarter: 2012Q1

REPORT INFORMATION
  Report Type: 
  Country: None (occurrence: None)
  Receive Date: 20120109
  Receipt Date: 20120109
  Transmission Date: 20120608
  Serious: No
  Sender: FDA-Public Use
  Company Number: None

PATIENT
  Sex: Female

DRUGS (2)
  1. PEGASYS [Suspect]
     Dosage: 180MCG QWEEK SUBQ
     Route: 058
     Dates: start: 20111110, end: 20111220
  2. RIBAVIRIN [Suspect]
     Dosage: 600 MG QAM PO ; 400 MG QPM PO
     Route: 048
     Dates: start: 20111110, end: 20111220

REACTIONS (2)
  - DIARRHOEA [None]
  - NAUSEA [None]
